FAERS Safety Report 9302889 (Version 1)
Quarter: 2013Q2

REPORT INFORMATION
  Report Type: Spontaneous
  Country: US (occurrence: US)
  Receive Date: 20130522
  Receipt Date: 20130522
  Transmission Date: 20140414
  Serious: Yes (Hospitalization)
  Sender: FDA-Public Use
  Company Number: US-BAYER-2013-062012

PATIENT
  Age: 37 Year
  Sex: Female
  Weight: 59.77 kg

DRUGS (24)
  1. YAZ [Suspect]
     Dosage: UNK
  2. WELLBUTRIN [Concomitant]
     Indication: DEPRESSION
     Dosage: 150 MG, QD
     Route: 048
  3. MAGNESIUM OXIDE [Concomitant]
     Dosage: 400 MG, QD
     Route: 048
  4. POTASSIUM CHLORIDE [Concomitant]
     Dosage: 1 MEQ, QD
     Route: 048
  5. CEFTAZIDIME [Concomitant]
     Route: 042
  6. CIPROFLOXACIN [Concomitant]
     Route: 042
  7. PREDNISONE [Concomitant]
     Dosage: 40 MG, QD
     Route: 048
  8. AFRIN [OXYMETAZOLINE] [Concomitant]
     Dosage: UNK
     Route: 045
  9. ALBUTEROL [Concomitant]
     Dosage: TWICE DAILY WITH VEST AND EVERY 4 HOURS AS NEEDED
  10. AZITHROMYCIN [Concomitant]
     Dosage: 500 MG 3 TIMES A WEEK
     Route: 048
  11. PULMOZYME [Concomitant]
     Dosage: 2.5 MG, BID
  12. ADVAIR DISKUS [Concomitant]
     Dosage: 250/50; 1 PUFF TWICE DAILY
  13. PREVACID [Concomitant]
     Dosage: 30 MG, BID
     Route: 048
  14. METFORMIN [Concomitant]
     Dosage: 1000 MG, BID
     Route: 048
  15. CREON [PANCREATIN] [Concomitant]
     Dosage: 24,000 UNITS; 3 CAPSULE, 6 TIMES DAILY
     Route: 048
  16. SPIRIVA [Concomitant]
     Dosage: 18 ?G, QD
  17. NOVOLOG [Concomitant]
     Dosage: 1 TO 10 CARB RATIO; DAILY
     Route: 058
  18. LANTUS [Concomitant]
     Dosage: 15 UNITS DAILY
     Route: 058
  19. CLARITIN [Concomitant]
     Dosage: 10 MG, QD
     Route: 048
  20. CALCIUM WITH VITAMIN D [Concomitant]
     Dosage: 500 MG-200 INTL (INTERPRETED AS INTERNATIONAL) UNITS, 1 TABLET TID  (THREE TIMES
  21. SINGULAIR [Concomitant]
     Dosage: 10 MG EVERY PM
     Route: 048
  22. CYMBALTA [Concomitant]
     Dosage: 20 MG, BID
     Route: 048
  23. TOBI [Concomitant]
     Dosage: 300 MG, 5 ML BID
  24. DIFLUCAN [Concomitant]
     Dosage: 100 MG, QD

REACTIONS (1)
  - Pulmonary embolism [None]
